FAERS Safety Report 19823647 (Version 1)
Quarter: 2021Q3

REPORT INFORMATION
  Report Type: Report from Study
  Country: GB (occurrence: GB)
  Receive Date: 20210913
  Receipt Date: 20210913
  Transmission Date: 20211014
  Serious: Yes (Other)
  Sender: FDA-Public Use
  Company Number: GB-AMGEN-GBRNI2021136986

PATIENT
  Age: 55 Year
  Sex: Female

DRUGS (1)
  1. AMG 510 [Suspect]
     Active Substance: AMG-510
     Indication: NON-SMALL CELL LUNG CANCER
     Dosage: 960 MILLIGRAM, QD
     Route: 048
     Dates: start: 20210702

REACTIONS (1)
  - Alanine aminotransferase abnormal [Recovering/Resolving]

NARRATIVE: CASE EVENT DATE: 20210828
